FAERS Safety Report 4333014-0 (Version None)
Quarter: 2004Q2

REPORT INFORMATION
  Report Type: 
  Country: None (occurrence: None)
  Receive Date: 20040405
  Receipt Date: 20040405
  Transmission Date: 20050107
  Serious: No
  Sender: FDA-Public Use
  Company Number: None

PATIENT
  Age: 95 Year
  Sex: Female
  Weight: 41.7309 kg

DRUGS (7)
  1. NAMENDA [Suspect]
     Indication: DEMENTIA ALZHEIMER'S TYPE
     Dosage: PO 5 MG DAILY X 7 DAYS, 5 MG BID X 7 DAYS, 10 MG BID X 7 DAYS
     Route: 048
     Dates: start: 20040217
  2. MULTI-VITAMINS [Concomitant]
  3. PERI-COLACE [Concomitant]
  4. AMARYL [Concomitant]
  5. . [Concomitant]
  6. TYLENOL (CAPLET) [Concomitant]
  7. ZITHROMAX [Concomitant]

REACTIONS (4)
  - AGITATION [None]
  - HALLUCINATION [None]
  - INSOMNIA [None]
  - SPEECH DISORDER [None]
